FAERS Safety Report 8881470 (Version 5)
Quarter: 2014Q4

REPORT INFORMATION
  Report Type: Spontaneous
  Country: US (occurrence: US)
  Receive Date: 20121101
  Receipt Date: 20141003
  Transmission Date: 20150529
  Serious: Yes (Hospitalization)
  Sender: FDA-Public Use
  Company Number: US-ASTRAZENECA-2012SE81746

PATIENT
  Age: 669 Month
  Sex: Female
  Weight: 68 kg

DRUGS (9)
  1. CRESTOR [Suspect]
     Active Substance: ROSUVASTATIN CALCIUM
     Indication: BLOOD CHOLESTEROL INCREASED
     Route: 048
     Dates: start: 201401, end: 201408
  2. NEXIUM [Suspect]
     Active Substance: ESOMEPRAZOLE MAGNESIUM
     Indication: ULCER
     Route: 048
     Dates: start: 2012, end: 201408
  3. LIPITOR [Concomitant]
     Active Substance: ATORVASTATIN CALCIUM
  4. UNKNOWN MEDICATIONS FOR MIGRAINES [Concomitant]
     Indication: MIGRAINE
  5. NEXIUM [Suspect]
     Active Substance: ESOMEPRAZOLE MAGNESIUM
     Indication: GASTROOESOPHAGEAL REFLUX DISEASE
     Route: 048
  6. NEXIUM [Suspect]
     Active Substance: ESOMEPRAZOLE MAGNESIUM
     Indication: ULCER
     Route: 048
  7. NEXIUM [Suspect]
     Active Substance: ESOMEPRAZOLE MAGNESIUM
     Indication: GASTROOESOPHAGEAL REFLUX DISEASE
     Route: 048
     Dates: start: 2012, end: 201408
  8. UNKNOWN MEDICATIONS FOR HIGH BLOOD PRESSURE [Concomitant]
     Indication: HYPERTENSION
  9. UNKNOWN MEDICATIONS FOR DIABETES [Concomitant]
     Indication: DIABETES MELLITUS

REACTIONS (12)
  - Gastrooesophageal reflux disease [Unknown]
  - Blood cholesterol increased [Unknown]
  - Vomiting [Unknown]
  - Abdominal pain upper [Unknown]
  - Nausea [Unknown]
  - Oesophageal pain [Unknown]
  - Drug dose omission [Unknown]
  - Chest pain [Unknown]
  - Dyspnoea [Unknown]
  - Gastric ulcer [Unknown]
  - Intentional product misuse [Unknown]
  - Dysphonia [Unknown]

NARRATIVE: CASE EVENT DATE: 201211
